FAERS Safety Report 15430719 (Version 1)
Quarter: 2018Q3

REPORT INFORMATION
  Report Type: Spontaneous
  Country: US (occurrence: US)
  Receive Date: 20180921
  Receipt Date: 20180921
  Transmission Date: 20181010
  Serious: Yes (Disabling)
  Sender: FDA-Public Use
  Company Number: None

PATIENT
  Age: 60 Year
  Sex: Female
  Weight: 65.7 kg

DRUGS (18)
  1. CLONIDINE. [Concomitant]
     Active Substance: CLONIDINE
  2. COQ10 [Concomitant]
     Active Substance: UBIDECARENONE
  3. VITAMIN D [Concomitant]
     Active Substance: CHOLECALCIFEROL
  4. INDOMETHACIN. [Suspect]
     Active Substance: INDOMETHACIN
     Indication: HEADACHE
     Dosage: ?          QUANTITY:1 TABLET(S);?
     Route: 048
     Dates: start: 20171226, end: 20180102
  5. CARBAMAZEPINE. [Concomitant]
     Active Substance: CARBAMAZEPINE
  6. METOPROLOL TARTRATE. [Concomitant]
     Active Substance: METOPROLOL TARTRATE
  7. SPIRONOLACTONE. [Concomitant]
     Active Substance: SPIRONOLACTONE
  8. HYDRALAZINE [Concomitant]
     Active Substance: HYDRALAZINE HYDROCHLORIDE
  9. MAGNESIUM [Concomitant]
     Active Substance: MAGNESIUM
  10. MILK THISTLE [Concomitant]
     Active Substance: DIETARY SUPPLEMENT\HERBALS\MILK THISTLE
  11. VITAMIN C [Concomitant]
     Active Substance: ASCORBIC ACID
  12. SODIUM CHLORIDE. [Concomitant]
     Active Substance: SODIUM CHLORIDE
  13. BOTOX [Concomitant]
     Active Substance: ONABOTULINUMTOXINA
  14. OMEPRAZOLE. [Concomitant]
     Active Substance: OMEPRAZOLE
  15. ALPRAZOLAM. [Concomitant]
     Active Substance: ALPRAZOLAM
  16. ACYCLOVIR. [Concomitant]
     Active Substance: ACYCLOVIR
  17. PROBIOTIC [Concomitant]
     Active Substance: PROBIOTICS NOS
  18. CALCIUM CITRATE [Concomitant]
     Active Substance: CALCIUM CITRATE

REACTIONS (3)
  - Nausea [None]
  - Drug ineffective [None]
  - Herbal toxicity [None]

NARRATIVE: CASE EVENT DATE: 20171226
